FAERS Safety Report 6417313-4 (Version None)
Quarter: 2009Q4

REPORT INFORMATION
  Report Type: 
  Country: None (occurrence: None)
  Receive Date: 20091028
  Receipt Date: 20091019
  Transmission Date: 20100525
  Serious: Yes (Other)
  Sender: FDA-Public Use
  Company Number: PHHY2009AU43347

PATIENT
  Sex: Male

DRUGS (2)
  1. CGP 57148B T35717+ [Suspect]
     Indication: CHRONIC MYELOID LEUKAEMIA
     Dosage: 400 MG, UNK
     Route: 048
  2. CGP 57148B T35717+ [Suspect]
     Dosage: 400 MG, UNK

REACTIONS (1)
  - LEUKAEMIA RECURRENT [None]
